FAERS Safety Report 8361031-2 (Version None)
Quarter: 2012Q2

REPORT INFORMATION
  Report Type: 
  Country: None (occurrence: None)
  Receive Date: 20120515
  Receipt Date: 20120514
  Transmission Date: 20120825
  Serious: Yes (Other)
  Sender: FDA-Public Use
  Company Number: PHHY2012NO014882

PATIENT
  Sex: Male

DRUGS (2)
  1. GILENYA [Suspect]
     Dates: start: 20111101
  2. GILENYA [Suspect]
     Route: 048
     Dates: start: 20111001

REACTIONS (4)
  - PYLORIC STENOSIS [None]
  - VOMITING [None]
  - IMPAIRED GASTRIC EMPTYING [None]
  - NAUSEA [None]
